FAERS Safety Report 25601676 (Version 1)
Quarter: 2025Q3

REPORT INFORMATION
  Report Type: Spontaneous
  Country: US (occurrence: US)
  Receive Date: 20250724
  Receipt Date: 20250724
  Transmission Date: 20251021
  Serious: No
  Sender: LUNDBECK
  Company Number: US-LUNDBECK-DKLU4017370

PATIENT
  Age: 35 Year
  Sex: Male
  Weight: 65.771 kg

DRUGS (1)
  1. VYEPTI [Suspect]
     Active Substance: EPTINEZUMAB-JJMR
     Indication: Product used for unknown indication
     Dosage: 100 MILLIGRAM
     Route: 041
     Dates: start: 20250719

REACTIONS (4)
  - Chest discomfort [Unknown]
  - Cough [Unknown]
  - Oropharyngeal discomfort [Unknown]
  - Throat irritation [Unknown]
